FAERS Safety Report 6792522-3 (Version None)
Quarter: 2010Q2

REPORT INFORMATION
  Report Type: 
  Country: None (occurrence: None)
  Receive Date: 20100624
  Receipt Date: 20080806
  Transmission Date: 20101027
  Serious: No
  Sender: FDA-Public Use
  Company Number: US-PFIZER INC-2008066702

PATIENT
  Sex: Female
  Weight: 54.43 kg

DRUGS (1)
  1. PROCARDIA [Suspect]

REACTIONS (4)
  - ENDODONTIC PROCEDURE [None]
  - GINGIVAL RECESSION [None]
  - PAIN IN EXTREMITY [None]
  - TOOTH LOSS [None]
